FAERS Safety Report 23831684 (Version 2)
Quarter: 2024Q2

REPORT INFORMATION
  Report Type: Report from Study
  Country: US (occurrence: None)
  Receive Date: 20240508
  Receipt Date: 20240516
  Transmission Date: 20240715
  Serious: Yes (Other)
  Sender: FDA-Public Use
  Company Number: 2024A104486

PATIENT
  Sex: Male

DRUGS (1)
  1. FARXIGA [Suspect]
     Active Substance: DAPAGLIFLOZIN PROPANEDIOL
     Indication: Atrioventricular block first degree
     Route: 048

REACTIONS (3)
  - Cardiac disorder [Unknown]
  - Neoplasm malignant [Unknown]
  - Disease progression [Unknown]
